FAERS Safety Report 6179569-5 (Version None)
Quarter: 2009Q2

REPORT INFORMATION
  Report Type: 
  Country: None (occurrence: None)
  Receive Date: 20090501
  Receipt Date: 20090501
  Transmission Date: 20091009
  Serious: Yes (Life-Threatening, Hospitalization)
  Sender: FDA-Public Use
  Company Number: None

PATIENT
  Sex: Female
  Weight: 40 kg

DRUGS (2)
  1. ANTITHYMOCYTE GLOBULIN, EQUINE [Suspect]
     Indication: APLASTIC ANAEMIA
     Dosage: 570 MG X2 IV DRIP
     Route: 041
     Dates: start: 20081230, end: 20090207
  2. ANTITHYMOCYTE GLOBULIN, EQUINE [Suspect]
     Indication: BONE MARROW TRANSPLANT
     Dosage: 570 MG X2 IV DRIP
     Route: 041
     Dates: start: 20081230, end: 20090207

REACTIONS (15)
  - AGITATION [None]
  - BLOOD PRESSURE ABNORMAL [None]
  - CRYING [None]
  - CYANOSIS [None]
  - DYSPNOEA [None]
  - LIP SWELLING [None]
  - LIVEDO RETICULARIS [None]
  - OXYGEN SATURATION ABNORMAL [None]
  - PAIN [None]
  - PULSE ABSENT [None]
  - RESPIRATORY ARREST [None]
  - SALIVARY HYPERSECRETION [None]
  - SWELLING FACE [None]
  - UNRESPONSIVE TO STIMULI [None]
  - WHEEZING [None]
